FAERS Safety Report 9555579 (Version 1)
Quarter: 2013Q3

REPORT INFORMATION
  Report Type: Spontaneous
  Country: US (occurrence: None)
  Receive Date: 20130724
  Receipt Date: 20130724
  Transmission Date: 20140515
  Serious: Yes (Hospitalization)
  Sender: FDA-Public Use
  Company Number: PHEH2013US005733

PATIENT
  Age: 59 Year
  Sex: Female
  Weight: 79 kg

DRUGS (10)
  1. GILENYA (FINGOLIMOD) CAPSULE, 0.5MG [Suspect]
     Route: 048
     Dates: start: 20120626, end: 201302
  2. BACLOFEN (BACLOFEN) [Concomitant]
  3. ZOLPIDEM (ZOLPIDEM) [Concomitant]
  4. METHADONE (METHADONE) [Concomitant]
  5. CYMBALTA (DULOXETINE HYDROCHLORIDE) [Concomitant]
  6. BABY ASPIRIN (ACETYLSALICYLIC ACID) [Concomitant]
  7. GABAPENTIN (GABAPENTIN) [Concomitant]
  8. VITAMIN D (ERGOCALCIFEROL) [Concomitant]
  9. NAPROXEN (NAPROXEN) [Concomitant]
  10. PROMETHAZIN (PROMETHAZINE HYDROCHLORIDE) [Concomitant]

REACTIONS (1)
  - Cellulitis [None]
